FAERS Safety Report 21087419 (Version 1)
Quarter: 2022Q3

REPORT INFORMATION
  Report Type: Spontaneous
  Country: US (occurrence: None)
  Receive Date: 20220714
  Receipt Date: 20220714
  Transmission Date: 20221027
  Serious: No
  Sender: FDA-Public Use
  Company Number: None

PATIENT
  Age: 34 Year
  Sex: Female
  Weight: 75.6 kg

DRUGS (1)
  1. PAXLOVID [Suspect]
     Active Substance: NIRMATRELVIR\RITONAVIR

REACTIONS (4)
  - Dyspepsia [None]
  - Gastrooesophageal reflux disease [None]
  - Abdominal discomfort [None]
  - Oropharyngeal discomfort [None]

NARRATIVE: CASE EVENT DATE: 20220712
